FAERS Safety Report 7769334-7 (Version None)
Quarter: 2011Q3

REPORT INFORMATION
  Report Type: 
  Country: None (occurrence: None)
  Receive Date: 20110922
  Receipt Date: 20110916
  Transmission Date: 20111222
  Serious: Yes (Other)
  Sender: FDA-Public Use
  Company Number: CA-PFIZER INC-2011219895

PATIENT

DRUGS (2)
  1. SOMATOSTATIN [Suspect]
     Indication: ACROMEGALY
  2. SOMAVERT [Suspect]
     Indication: ACROMEGALY
     Dosage: UNK

REACTIONS (1)
  - EMBOLISM [None]
